FAERS Safety Report 25572161 (Version 1)
Quarter: 2025Q3

REPORT INFORMATION
  Report Type: Report from Study
  Country: ZA (occurrence: ZA)
  Receive Date: 20250717
  Receipt Date: 20250717
  Transmission Date: 20251021
  Serious: Yes (Hospitalization)
  Sender: ABBVIE
  Company Number: ZA-ABBVIE-6375292

PATIENT
  Sex: Male

DRUGS (2)
  1. BOTOX [Suspect]
     Active Substance: ONABOTULINUMTOXINA
     Indication: Muscle spasticity
     Route: 065
     Dates: start: 20241211, end: 20241211
  2. BOTOX [Suspect]
     Active Substance: ONABOTULINUMTOXINA
     Indication: Muscle spasticity
     Route: 065
     Dates: start: 20250314, end: 20250314

REACTIONS (1)
  - Vascular graft [Recovering/Resolving]

NARRATIVE: CASE EVENT DATE: 20250618
